FAERS Safety Report 21650567 (Version 2)
Quarter: 2023Q1

REPORT INFORMATION
  Report Type: Spontaneous
  Country: US (occurrence: US)
  Receive Date: 20221128
  Receipt Date: 20230210
  Transmission Date: 20230417
  Serious: No
  Sender: FDA-Public Use
  Company Number: US-PFIZER INC-202201325049

PATIENT
  Age: 63 Year
  Sex: Female

DRUGS (17)
  1. IBRANCE [Suspect]
     Active Substance: PALBOCICLIB
     Dosage: 1 TABLET DAILY FOR 21 DAYS, THEN 7 DAYS OFF
     Dates: start: 202105
  2. ASPIRIN [Concomitant]
     Active Substance: ASPIRIN
     Dosage: 325 MG
  3. B12 ACTIVE [Concomitant]
     Dosage: 1000 UG
  4. MAGNESIUM [Concomitant]
     Active Substance: MAGNESIUM
     Dosage: 300 MG
  5. CALCIUM [Concomitant]
     Active Substance: CALCIUM
  6. DESVENLAFAXINE SUCCINATE [Concomitant]
     Active Substance: DESVENLAFAXINE SUCCINATE
     Dosage: 50 MG
  7. JARDIANCE [Concomitant]
     Active Substance: EMPAGLIFLOZIN
     Dosage: 25 MG
  8. ANASTROZOLE [Concomitant]
     Active Substance: ANASTROZOLE
     Dosage: 1 MG
  9. CARVEDILOL [Concomitant]
     Active Substance: CARVEDILOL
     Dosage: 12.5 MG
  10. LOSARTAN POTASSIUM [Concomitant]
     Active Substance: LOSARTAN POTASSIUM
     Dosage: 25 MG
  11. PROCHLORPERAZINE MALEATE [Concomitant]
     Active Substance: PROCHLORPERAZINE MALEATE
     Dosage: 10 MG
  12. SPIRONOLACTONE [Concomitant]
     Active Substance: SPIRONOLACTONE
     Dosage: 25 MG
  13. GLIPIZIDE [Concomitant]
     Active Substance: GLIPIZIDE
     Dosage: 10 MG
  14. CLONAZEPAM [Concomitant]
     Active Substance: CLONAZEPAM
     Dosage: 0.5 MG
  15. VITAMIN C [Concomitant]
     Active Substance: ASCORBIC ACID
     Dosage: 100 MG
  16. VITAMIN D3 [Concomitant]
     Active Substance: CHOLECALCIFEROL
     Dosage: UNK
  17. ZINC [Concomitant]
     Active Substance: ZINC
     Dosage: UNK

REACTIONS (3)
  - Oral pain [Not Recovered/Not Resolved]
  - Nausea [Not Recovered/Not Resolved]
  - Diarrhoea [Not Recovered/Not Resolved]
